FAERS Safety Report 6206420-7 (Version None)
Quarter: 2009Q2

REPORT INFORMATION
  Report Type: 
  Country: None (occurrence: None)
  Receive Date: 20090528
  Receipt Date: 20090526
  Transmission Date: 20091009
  Serious: No
  Sender: FDA-Public Use
  Company Number: US-B.I. PHARMACEUTICALS,INC./RIDGEFIELD-2009-BP-06411BP

PATIENT
  Age: 59 Year
  Sex: Female

DRUGS (2)
  1. CLONIDINE HCL [Suspect]
     Indication: HYPERTENSION
     Dosage: .2MG
     Route: 048
     Dates: start: 20090101
  2. EXFORGE [Concomitant]
     Indication: HYPERTENSION

REACTIONS (3)
  - DRY MOUTH [None]
  - FEELING OF RELAXATION [None]
  - SOMNOLENCE [None]
